FAERS Safety Report 10393142 (Version 5)
Quarter: 2015Q4

REPORT INFORMATION
  Report Type: Spontaneous
  Country: JP (occurrence: JP)
  Receive Date: 20140819
  Receipt Date: 20151205
  Transmission Date: 20160304
  Serious: Yes (Life-Threatening)
  Sender: FDA-Public Use
  Company Number: JP-AMGEN-JPNSP2014039022

PATIENT
  Age: 71 Year
  Sex: Male

DRUGS (5)
  1. EPOGIN [Suspect]
     Active Substance: ERYTHROPOIETIN
     Indication: NEPHROGENIC ANAEMIA
     Dosage: 1500 IU, Q3WK
     Route: 042
     Dates: start: 201310, end: 201312
  2. FESIN                              /00023550/ [Concomitant]
     Active Substance: IRON SUCROSE
     Indication: IRON DEFICIENCY ANAEMIA
     Dosage: 40 MG, QWK
     Route: 042
     Dates: start: 201310
  3. NESP [Suspect]
     Active Substance: DARBEPOETIN ALFA
     Indication: NEPHROGENIC ANAEMIA
     Dosage: 120 MUG, QWK
     Route: 040
     Dates: start: 201404, end: 201406
  4. CEREDIST [Concomitant]
     Active Substance: TALTIRELIN
     Indication: SPINOCEREBELLAR DISORDER
     Dosage: 5 MG, 3 TIMES/WK
     Route: 048
     Dates: start: 201305
  5. KIDMIN                             /07401301/ [Concomitant]
     Indication: NUTRITIONAL SUPPLEMENTATION
     Dosage: 200 ML, Q3WK
     Route: 041
     Dates: start: 201202

REACTIONS (2)
  - Drug ineffective [Unknown]
  - Anaemia [Not Recovered/Not Resolved]

NARRATIVE: CASE EVENT DATE: 201310
